FAERS Safety Report 14390801 (Version 6)
Quarter: 2019Q2

REPORT INFORMATION
  Report Type: Spontaneous
  Country: US (occurrence: US)
  Receive Date: 20180116
  Receipt Date: 20190522
  Transmission Date: 20190711
  Serious: Yes (Other)
  Sender: FDA-Public Use
  Company Number: US-ASTRAZENECA-2018SE04034

PATIENT
  Age: 24837 Day
  Sex: Male
  Weight: 76.7 kg

DRUGS (47)
  1. CEPHALEXIN. [Concomitant]
     Active Substance: CEPHALEXIN
  2. NIACIN. [Concomitant]
     Active Substance: NIACIN
  3. PRAVASTATIN. [Concomitant]
     Active Substance: PRAVASTATIN
  4. ASPIRIN. [Concomitant]
     Active Substance: ASPIRIN
     Indication: BLOOD CHOLESTEROL
     Dosage: WHEN NEEDED
  5. JANUVIA [Concomitant]
     Active Substance: SITAGLIPTIN PHOSPHATE
  6. AGGRENOX [Concomitant]
     Active Substance: ASPIRIN\DIPYRIDAMOLE
  7. MUPIROCIN. [Concomitant]
     Active Substance: MUPIROCIN
  8. ZAROXOLYN [Concomitant]
     Active Substance: METOLAZONE
  9. AMARYL [Concomitant]
     Active Substance: GLIMEPIRIDE
  10. NEXIUM [Suspect]
     Active Substance: ESOMEPRAZOLE MAGNESIUM
     Indication: ABDOMINAL DISCOMFORT
     Route: 048
     Dates: start: 20081217, end: 2017
  11. VICTOZA [Concomitant]
     Active Substance: LIRAGLUTIDE
     Indication: DIABETES MELLITUS
  12. LOSARTAN. [Concomitant]
     Active Substance: LOSARTAN
     Indication: BLOOD PRESSURE MEASUREMENT
  13. SYNTHROID [Concomitant]
     Active Substance: LEVOTHYROXINE SODIUM
     Indication: HYPOTHYROIDISM
  14. ELIQUIS [Concomitant]
     Active Substance: APIXABAN
     Indication: BLOOD DISORDER
  15. PREDNISONE. [Concomitant]
     Active Substance: PREDNISONE
  16. OXAZEPAM. [Concomitant]
     Active Substance: OXAZEPAM
  17. SITAGLIPTIN [Concomitant]
     Active Substance: SITAGLIPTIN
  18. LIPITOR [Concomitant]
     Active Substance: ATORVASTATIN CALCIUM
  19. NEXIUM [Suspect]
     Active Substance: ESOMEPRAZOLE MAGNESIUM
     Indication: ABDOMINAL DISCOMFORT
     Route: 048
     Dates: start: 2008, end: 2018
  20. FAMOTIDINE. [Concomitant]
     Active Substance: FAMOTIDINE
     Dates: start: 201801
  21. ZETIA [Concomitant]
     Active Substance: EZETIMIBE
  22. JANUMET [Concomitant]
     Active Substance: METFORMIN HYDROCHLORIDE\SITAGLIPTIN PHOSPHATE
  23. LEVOFLOXACIN. [Concomitant]
     Active Substance: LEVOFLOXACIN
  24. LOTREL [Concomitant]
     Active Substance: AMLODIPINE BESYLATE\BENAZEPRIL HYDROCHLORIDE
  25. NARCAN [Concomitant]
     Active Substance: NALOXONE HYDROCHLORIDE
  26. NEXIUM [Suspect]
     Active Substance: ESOMEPRAZOLE MAGNESIUM
     Indication: GASTROOESOPHAGEAL REFLUX DISEASE
     Route: 048
     Dates: start: 20081217, end: 2017
  27. NEXIUM [Suspect]
     Active Substance: ESOMEPRAZOLE MAGNESIUM
     Indication: GASTROOESOPHAGEAL REFLUX DISEASE
     Route: 048
     Dates: start: 2008, end: 2018
  28. ENOXAPARIN [Concomitant]
     Active Substance: ENOXAPARIN
  29. AMITIZA [Concomitant]
     Active Substance: LUBIPROSTONE
  30. ROMAZICON [Concomitant]
     Active Substance: FLUMAZENIL
  31. NEXIUM [Suspect]
     Active Substance: ESOMEPRAZOLE MAGNESIUM
     Indication: ABDOMINAL DISCOMFORT
     Route: 048
     Dates: start: 20150617
  32. CRESTOR [Concomitant]
     Active Substance: ROSUVASTATIN CALCIUM
     Indication: BLOOD CHOLESTEROL
  33. AMLODIPINE [Concomitant]
     Active Substance: AMLODIPINE BESYLATE
  34. PROTONIX [Concomitant]
     Active Substance: PANTOPRAZOLE SODIUM
  35. LIVALO [Concomitant]
     Active Substance: PITAVASTATIN CALCIUM
  36. NEXIUM [Suspect]
     Active Substance: ESOMEPRAZOLE MAGNESIUM
     Indication: GASTROOESOPHAGEAL REFLUX DISEASE
     Route: 048
     Dates: start: 20150617
  37. TOPROL XL [Concomitant]
     Active Substance: METOPROLOL SUCCINATE
     Indication: BLOOD PRESSURE MEASUREMENT
     Dates: start: 2009, end: 2015
  38. HUMALOG [Concomitant]
     Active Substance: INSULIN LISPRO
     Indication: DIABETES MELLITUS
  39. PLAVIX [Concomitant]
     Active Substance: CLOPIDOGREL BISULFATE
     Indication: BLOOD DISORDER
  40. HYDROCHLOROTHIAZIDE. [Concomitant]
     Active Substance: HYDROCHLOROTHIAZIDE
     Indication: POLYURIA
  41. COLCRYS [Concomitant]
     Active Substance: COLCHICINE
  42. OXAZEPAM. [Concomitant]
     Active Substance: OXAZEPAM
  43. NIASPAN [Concomitant]
     Active Substance: NIACIN
  44. COREG [Concomitant]
     Active Substance: CARVEDILOL
  45. LANTUS [Concomitant]
     Active Substance: INSULIN GLARGINE
     Indication: BLOOD INSULIN
  46. TUMS [Concomitant]
     Active Substance: CALCIUM CARBONATE
     Dosage: OVER 10 YEARS AS NEEDED
  47. EZETIMIBE. [Concomitant]
     Active Substance: EZETIMIBE

REACTIONS (7)
  - Renal tubular necrosis [Unknown]
  - Acute kidney injury [Not Recovered/Not Resolved]
  - Chronic kidney disease [Not Recovered/Not Resolved]
  - Renal injury [Unknown]
  - Nephrogenic anaemia [Unknown]
  - Renal impairment [Unknown]
  - Renal failure [Unknown]

NARRATIVE: CASE EVENT DATE: 20150417
